FAERS Safety Report 21331651 (Version 1)
Quarter: 2022Q3

REPORT INFORMATION
  Report Type: Spontaneous
  Country: US (occurrence: None)
  Receive Date: 20220913
  Receipt Date: 20220913
  Transmission Date: 20221027
  Serious: No
  Sender: FDA-Public Use
  Company Number: None

PATIENT
  Age: 48 Year
  Sex: Female
  Weight: 88.9 kg

DRUGS (8)
  1. IBRANCE [Suspect]
     Active Substance: PALBOCICLIB
     Dosage: FREQUENCY : AS DIRECTED;?
     Route: 048
  2. ANASTROZOLE [Concomitant]
     Active Substance: ANASTROZOLE
  3. BIOTIN [Concomitant]
     Active Substance: BIOTIN
  4. ELIQUIS [Concomitant]
     Active Substance: APIXABAN
  5. FISH OIL [Concomitant]
     Active Substance: FISH OIL
  6. GARLIC [Concomitant]
     Active Substance: GARLIC
  7. IRON 27 [Concomitant]
  8. DIETARY SUPPLEMENT\HERBALS\MILK THISTLE [Concomitant]
     Active Substance: DIETARY SUPPLEMENT\HERBALS\MILK THISTLE

REACTIONS (1)
  - Drug ineffective [None]
